FAERS Safety Report 6400174-7 (Version None)
Quarter: 2009Q4

REPORT INFORMATION
  Report Type: 
  Country: None (occurrence: None)
  Receive Date: 20091014
  Receipt Date: 20091008
  Transmission Date: 20100525
  Serious: No
  Sender: FDA-Public Use
  Company Number: US-JNJFOC-20091003851

PATIENT
  Sex: Female

DRUGS (7)
  1. FENTANYL TRANSDERMAL SYSTEM [Suspect]
     Indication: DRUG USE FOR UNKNOWN INDICATION
     Route: 062
     Dates: start: 20090701, end: 20090805
  2. DURAGESIC-100 [Suspect]
     Indication: DRUG USE FOR UNKNOWN INDICATION
     Route: 062
     Dates: start: 20090806
  3. DURAGESIC-100 [Suspect]
     Route: 062
     Dates: start: 20090101
  4. AZITHROMYCIN [Concomitant]
     Route: 065
  5. SPIRIVA [Concomitant]
  6. FLONASE [Concomitant]
  7. OXYCODONE [Concomitant]

REACTIONS (4)
  - ADVERSE EVENT [None]
  - APPLICATION SITE PRURITUS [None]
  - DRUG DISPENSING ERROR [None]
  - PRODUCT QUALITY ISSUE [None]
